FAERS Safety Report 19322457 (Version 1)
Quarter: 2021Q2

REPORT INFORMATION
  Report Type: Spontaneous
  Country: KR (occurrence: KR)
  Receive Date: 20210528
  Receipt Date: 20210528
  Transmission Date: 20210717
  Serious: Yes (Death)
  Sender: FDA-Public Use
  Company Number: KR-ASTRAZENECA-2021A470746

PATIENT
  Age: 50 Year
  Sex: Female

DRUGS (2)
  1. LYNPARZA [Suspect]
     Active Substance: OLAPARIB
     Dosage: 150MG 78 TABLETS
     Route: 048
     Dates: start: 20201123
  2. LYNPARZA [Suspect]
     Active Substance: OLAPARIB
     Dosage: 150MG 217 TABLETS
     Route: 048
     Dates: start: 20210101

REACTIONS (1)
  - Asphyxia [Fatal]

NARRATIVE: CASE EVENT DATE: 20210419
